FAERS Safety Report 7484027-1 (Version None)
Quarter: 2011Q2

REPORT INFORMATION
  Report Type: 
  Country: None (occurrence: None)
  Receive Date: 20110517
  Receipt Date: 20110411
  Transmission Date: 20111010
  Serious: Yes (Hospitalization, Other)
  Sender: FDA-Public Use
  Company Number: US-BAYER-201035801NA

PATIENT
  Age: 35 Year
  Sex: Female
  Weight: 71.202 kg

DRUGS (10)
  1. COMBIVENT [Concomitant]
  2. ZITHROMAX [Concomitant]
  3. YASMIN [Suspect]
     Indication: ACNE
  4. CHANTIX [Concomitant]
  5. CIPRO [Concomitant]
  6. LEVOTHYROXINE SODIUM [Concomitant]
  7. DROSPIRENONE AND ETHINYL ESTRADIOL [Suspect]
     Indication: ACNE
  8. DARVOCET-N 50 [Concomitant]
  9. MUCINEX [Concomitant]
  10. YAZ [Suspect]
     Indication: ACNE

REACTIONS (2)
  - INJURY [None]
  - PULMONARY EMBOLISM [None]
